FAERS Safety Report 9244793 (Version 1)
Quarter: 2013Q2

REPORT INFORMATION
  Report Type: Spontaneous
  Country: CO (occurrence: CO)
  Receive Date: 20130422
  Receipt Date: 20130422
  Transmission Date: 20140414
  Serious: Yes (Death)
  Sender: FDA-Public Use
  Company Number: CO-JNJFOC-20130411355

PATIENT
  Age: 79 Year
  Sex: Female

DRUGS (1)
  1. REMINYL [Suspect]
     Indication: SENILE DEMENTIA
     Route: 048
     Dates: start: 20110228, end: 20130301

REACTIONS (1)
  - Respiratory arrest [Fatal]
